FAERS Safety Report 5195619-7 (Version None)
Quarter: 2006Q4

REPORT INFORMATION
  Report Type: 
  Country: None (occurrence: None)
  Receive Date: 20061226
  Receipt Date: 20061226
  Transmission Date: 20070319
  Serious: Yes (Hospitalization)
  Sender: FDA-Public Use
  Company Number: None

PATIENT
  Sex: Male
  Weight: 70.4 kg

DRUGS (3)
  1. CLOFARABINE [Suspect]
     Dosage: 38MG   DAILY   IV DRIP
     Route: 041
     Dates: start: 20061109, end: 20061113
  2. CAMPATH [Suspect]
     Dosage: 20 MG   DAILY   IV DRIP
     Route: 041
     Dates: start: 20061109, end: 20061113
  3. MELPHALAN [Suspect]
     Dosage: 190MG  DAILY  IV DRIP
     Route: 041
     Dates: start: 20061114, end: 20061114

REACTIONS (1)
  - CONVULSION [None]
